FAERS Safety Report 6602231-9 (Version None)
Quarter: 2010Q1

REPORT INFORMATION
  Report Type: 
  Country: None (occurrence: None)
  Receive Date: 20100225
  Receipt Date: 20100211
  Transmission Date: 20100710
  Serious: Yes (Death)
  Sender: FDA-Public Use
  Company Number: GB-PURDUE-USA-2009-0041209

PATIENT
  Age: 41 Year
  Sex: Male

DRUGS (1)
  1. TRAMADOL HCL [Suspect]
     Indication: BACK PAIN
     Dosage: 100 MG, UNK
     Route: 048
     Dates: start: 20090718, end: 20090718

REACTIONS (3)
  - DEATH [None]
  - DRY MOUTH [None]
  - DYSPNOEA [None]
